FAERS Safety Report 4562404-6 (Version None)
Quarter: 2005Q1

REPORT INFORMATION
  Report Type: 
  Country: None (occurrence: None)
  Receive Date: 20050127
  Receipt Date: 20040827
  Transmission Date: 20050727
  Serious: No
  Sender: FDA-Public Use
  Company Number: US-BRISTOL-MYERS SQUIBB COMPANY-12686382

PATIENT
  Age: 3 Decade
  Sex: Female

DRUGS (1)
  1. KENALOG-10 [Suspect]
     Route: 023
     Dates: start: 20040827, end: 20040827

REACTIONS (1)
  - RASH GENERALISED [None]
